FAERS Safety Report 6699324-7 (Version None)
Quarter: 2010Q2

REPORT INFORMATION
  Report Type: 
  Country: None (occurrence: None)
  Receive Date: 20100426
  Receipt Date: 20100407
  Transmission Date: 20101027
  Serious: Yes (Other)
  Sender: FDA-Public Use
  Company Number: 2010AP000722

PATIENT
  Age: 57 Year
  Sex: Female

DRUGS (4)
  1. ALENDRONATE SODIUM [Suspect]
     Indication: OSTEOPOROSIS
  2. PREDNISOLONE [Concomitant]
  3. CALCIUM (CALCIUM) [Concomitant]
  4. ERGOCALCIFEROL [Concomitant]

REACTIONS (3)
  - COUGH [None]
  - PATHOLOGICAL FRACTURE [None]
  - RIB FRACTURE [None]
